FAERS Safety Report 11646862 (Version 1)
Quarter: 2015Q4

REPORT INFORMATION
  Report Type: Spontaneous
  Country: US (occurrence: US)
  Receive Date: 20151020
  Receipt Date: 20151020
  Transmission Date: 20160304
  Serious: No
  Sender: FDA-Public Use
  Company Number: US-ROCHE-ITM201505IM015824

PATIENT
  Sex: Male
  Weight: 127.12 kg

DRUGS (2)
  1. ESBRIET [Suspect]
     Active Substance: PIRFENIDONE
     Indication: IDIOPATHIC PULMONARY FIBROSIS
     Route: 048
     Dates: start: 20150423
  2. PREDNISONE. [Concomitant]
     Active Substance: PREDNISONE

REACTIONS (11)
  - Fatigue [Unknown]
  - Hiatus hernia [Unknown]
  - Flatulence [Unknown]
  - Bronchitis [Unknown]
  - Weight decreased [Unknown]
  - Abdominal pain upper [Unknown]
  - Abdominal distension [Unknown]
  - Diarrhoea [Unknown]
  - Feeling cold [Unknown]
  - Hyperglycaemia [Unknown]
  - Vomiting [Unknown]
